FAERS Safety Report 4462054-6 (Version None)
Quarter: 2004Q3

REPORT INFORMATION
  Report Type: 
  Country: None (occurrence: None)
  Receive Date: 20040924
  Receipt Date: 20040917
  Transmission Date: 20050211
  Serious: No
  Sender: FDA-Public Use
  Company Number: 2004CG01884

PATIENT
  Age: 64 Year
  Sex: Male

DRUGS (2)
  1. NEXIUM [Suspect]
     Indication: INFLAMMATION
     Dosage: 40 MG QD; PO
     Route: 048
     Dates: start: 20040906, end: 20040912
  2. NEXIUM [Suspect]
     Indication: OESOPHAGEAL DISORDER
     Dosage: 40 MG QD; PO
     Route: 048
     Dates: start: 20040906, end: 20040912

REACTIONS (7)
  - CHROMATURIA [None]
  - DIARRHOEA [None]
  - FAECES DISCOLOURED [None]
  - FATIGUE [None]
  - HEPATOMEGALY [None]
  - JAUNDICE [None]
  - PRURITUS [None]
